FAERS Safety Report 20416400 (Version 1)
Quarter: 2022Q1

REPORT INFORMATION
  Report Type: Spontaneous
  Country: US (occurrence: US)
  Receive Date: 20220202
  Receipt Date: 20220202
  Transmission Date: 20220424
  Serious: No
  Sender: FDA-Public Use
  Company Number: US-GILEAD-2022-0567949

PATIENT
  Sex: Male

DRUGS (6)
  1. SOFOSBUVIR\VELPATASVIR [Suspect]
     Active Substance: SOFOSBUVIR\VELPATASVIR
     Indication: Chronic hepatitis C
     Dosage: 1 DOSAGE FORM, QD
     Route: 048
  2. ENBREL [Concomitant]
     Active Substance: ETANERCEPT
  3. LISINOPRIL [Concomitant]
     Active Substance: LISINOPRIL
  4. MELOXICAM [Concomitant]
     Active Substance: MELOXICAM
  5. PREDNISONE [Concomitant]
     Active Substance: PREDNISONE
  6. ASPIRIN [Concomitant]
     Active Substance: ASPIRIN

REACTIONS (1)
  - Diarrhoea [Not Recovered/Not Resolved]
